FAERS Safety Report 13389567 (Version 3)
Quarter: 2017Q2

REPORT INFORMATION
  Report Type: Spontaneous
  Country: US (occurrence: US)
  Receive Date: 20170330
  Receipt Date: 20170411
  Transmission Date: 20170830
  Serious: Yes (Death, Hospitalization)
  Sender: FDA-Public Use
  Company Number: US-JNJFOC-20170331601

PATIENT
  Sex: Female

DRUGS (3)
  1. COUMADIN [Suspect]
     Active Substance: WARFARIN SODIUM
     Indication: ATRIAL FIBRILLATION
     Route: 065
  2. IMBRUVICA [Suspect]
     Active Substance: IBRUTINIB
     Indication: NON-HODGKIN^S LYMPHOMA
     Route: 048
     Dates: start: 201612
  3. IMBRUVICA [Suspect]
     Active Substance: IBRUTINIB
     Indication: LYMPHOMA
     Route: 048
     Dates: start: 201612

REACTIONS (7)
  - Off label use [Recovered/Resolved]
  - Subdural haemorrhage [Fatal]
  - Headache [Fatal]
  - International normalised ratio increased [Unknown]
  - Mental status changes [Fatal]
  - Thrombocytopenia [Unknown]
  - Product use in unapproved indication [Recovered/Resolved]
